FAERS Safety Report 5087246-7 (Version None)
Quarter: 2006Q3

REPORT INFORMATION
  Report Type: 
  Country: None (occurrence: None)
  Receive Date: 20060821
  Receipt Date: 20060810
  Transmission Date: 20061208
  Serious: Yes (Life-Threatening, Other)
  Sender: FDA-Public Use
  Company Number: HQWYE336410AUG06

PATIENT
  Age: 74 Year
  Sex: Male

DRUGS (2)
  1. PANTECTA         (PANTOPRAZOLE DELAYED RELEASE) [Suspect]
     Dosage: 40 MG ORAL
     Route: 048
     Dates: start: 20060322, end: 20060424
  2. NOLOTIL      (METAMIZOLE MAGNESIUM ) [Suspect]
     Dosage: 5 G, INTRAVENOUS
     Route: 042
     Dates: start: 20060322, end: 20060424

REACTIONS (1)
  - AGRANULOCYTOSIS [None]
